FAERS Safety Report 11381683 (Version 1)
Quarter: 2015Q3

REPORT INFORMATION
  Report Type: Spontaneous
  Country: US (occurrence: US)
  Receive Date: 20150814
  Receipt Date: 20150814
  Transmission Date: 20151125
  Serious: No
  Sender: FDA-Public Use
  Company Number: US-GALDERMA-US15001988

PATIENT
  Sex: Female

DRUGS (9)
  1. SMASHBOX PRIMER [Concomitant]
     Indication: THERAPEUTIC SKIN CARE TOPICAL
     Route: 061
  2. REVLON POWDER SMASHBOX PRIMER [Concomitant]
     Indication: THERAPEUTIC SKIN CARE TOPICAL
     Route: 061
  3. AVEENO BODY MOISTURIZER [Concomitant]
     Indication: DRY SKIN PROPHYLAXIS
     Route: 061
  4. ADAPALENE GEL, 0.3% [Suspect]
     Active Substance: ADAPALENE
     Indication: ACNE
     Dosage: 0.3%
     Route: 061
     Dates: start: 201502, end: 201503
  5. MAYBELLINE LIQUID CONCEALER [Concomitant]
     Indication: THERAPEUTIC SKIN CARE TOPICAL
     Route: 061
  6. ACZONE(DAPSONE) GEL 5% [Concomitant]
     Indication: ACNE
     Dosage: 5%
     Route: 061
  7. JOHNSON + JOHNSON PURPOSE [Concomitant]
     Indication: THERAPEUTIC SKIN CARE TOPICAL
     Route: 061
  8. ASPIRIN(ACETYLSALICYLIC ACID) [Concomitant]
     Active Substance: ASPIRIN
     Dosage: 81 MG
     Route: 048
  9. IBUPROFEN. [Concomitant]
     Active Substance: IBUPROFEN
     Indication: DERMATITIS
     Dosage: 1200 MG
     Route: 048

REACTIONS (8)
  - Skin haemorrhage [Unknown]
  - Pruritus [Unknown]
  - Skin burning sensation [Unknown]
  - Skin fragility [Unknown]
  - Skin atrophy [Unknown]
  - Sleep disorder [Unknown]
  - Dermatitis [Unknown]
  - Skin irritation [Not Recovered/Not Resolved]

NARRATIVE: CASE EVENT DATE: 2015
